FAERS Safety Report 10172818 (Version 3)
Quarter: 2015Q2

REPORT INFORMATION
  Report Type: Spontaneous
  Country: US (occurrence: US)
  Receive Date: 20140515
  Receipt Date: 20150608
  Transmission Date: 20150821
  Serious: Yes (Hospitalization, Other)
  Sender: FDA-Public Use
  Company Number: US-GLAXOSMITHKLINE-A1072309A

PATIENT
  Sex: Male

DRUGS (7)
  1. ADVAIR HFA [Suspect]
     Active Substance: FLUTICASONE PROPIONATE\SALMETEROL XINAFOATE
     Indication: CHRONIC OBSTRUCTIVE PULMONARY DISEASE
     Dosage: 1 PUFF(S), BID
     Route: 055
     Dates: start: 2001
  2. FLONASE [Concomitant]
     Active Substance: FLUTICASONE PROPIONATE
  3. OMEGA 3 [Concomitant]
     Active Substance: OMEGA-3 FATTY ACIDS
  4. ADVAIR HFA [Suspect]
     Active Substance: FLUTICASONE PROPIONATE\SALMETEROL XINAFOATE
     Indication: ASTHMA
     Dosage: UNK
  5. ASPIRIN. [Concomitant]
     Active Substance: ASPIRIN
  6. PROTONIX [Concomitant]
     Active Substance: PANTOPRAZOLE SODIUM
  7. SINGULAIR [Concomitant]
     Active Substance: MONTELUKAST SODIUM

REACTIONS (9)
  - Cataract [Recovered/Resolved with Sequelae]
  - Respiratory tract infection [Unknown]
  - Coronary artery bypass [Recovered/Resolved with Sequelae]
  - Staphylococcal infection [Recovered/Resolved with Sequelae]
  - Nephrolithiasis [Recovered/Resolved with Sequelae]
  - Pneumonia [Recovered/Resolved with Sequelae]
  - Knee arthroplasty [Unknown]
  - Skin tightness [Recovered/Resolved with Sequelae]
  - Surgery [Unknown]

NARRATIVE: CASE EVENT DATE: 2001
